FAERS Safety Report 6242876-1 (Version None)
Quarter: 2009Q2

REPORT INFORMATION
  Report Type: 
  Country: None (occurrence: None)
  Receive Date: 20090624
  Receipt Date: 20090615
  Transmission Date: 20091009
  Serious: Yes (Hospitalization)
  Sender: FDA-Public Use
  Company Number: SE-B.I. PHARMACEUTICALS,INC./RIDGEFIELD-2009-SW-00152SW

PATIENT
  Sex: Male
  Weight: 84 kg

DRUGS (32)
  1. CLONIDINE [Suspect]
     Indication: CANCER PAIN
     Dosage: STRENGTH 20?G/ML, 8?G/HR,0.5ML/HR
     Route: 039
     Dates: start: 20090128, end: 20090130
  2. CLONIDINE [Suspect]
     Dosage: 10?G/ML, 4?G/HR, 0.4ML/HR
     Route: 039
     Dates: start: 20090130
  3. CLONIDINE [Suspect]
     Dosage: 10?G/ML, 0.3ML/HR
     Route: 039
     Dates: start: 20090201, end: 20090203
  4. CLONIDINE [Suspect]
     Dosage: 2?G/HR, 10?G/ML,0.2ML/HR
     Route: 039
     Dates: start: 20090203, end: 20090225
  5. BUPIVACAINE [Suspect]
     Indication: CANCER PAIN
     Dosage: 1MG/ML, 0.4MG/HR, 0.5ML/HR
     Route: 039
     Dates: start: 20090128, end: 20090130
  6. BUPIVACAINE [Suspect]
     Dosage: 1MG/ML, 0.4ML/HR
     Route: 039
     Dates: start: 20090130
  7. BUPIVACAINE [Suspect]
     Dosage: 1MG/ML, 0.3ML/HR
     Route: 039
     Dates: start: 20090201, end: 20090203
  8. BUPIVACAINE [Suspect]
     Dosage: 1MG/ML, 0.2ML/HR, 0.2MG/HR
     Route: 039
     Dates: start: 20090203
  9. BUPIVACAINE [Suspect]
     Dosage: 0.4MG/HR, 1MG/ML, 0.5ML/HR
     Route: 039
     Dates: start: 20090501, end: 20090601
  10. BUPIVACAINE [Suspect]
     Dosage: 1MG/ML, 0.7ML/HR, 0.6MG/HR
     Route: 039
     Dates: start: 20090601
  11. MORPHINE [Suspect]
     Indication: CANCER PAIN
     Dosage: 0.2MG/ML, 0.08MG/HR, 0.5ML/HR
     Route: 039
     Dates: start: 20090128, end: 20090130
  12. MORPHINE [Suspect]
     Dosage: 0.2MG/ML, 0.4ML/HR
     Route: 039
     Dates: start: 20090130
  13. MORPHINE [Suspect]
     Dosage: 0.2MG/ML, 0.3ML/HR
     Route: 039
     Dates: start: 20090201, end: 20090203
  14. MORPHINE [Suspect]
     Dosage: 0.04MG/HR
     Route: 039
     Dates: start: 20090203
  15. MORPHINE [Suspect]
     Dosage: 0.04MG/HR, 0.2MG/ML, 0.5ML/HR
     Route: 039
     Dates: start: 20090501, end: 20090601
  16. MORPHINE [Suspect]
     Dosage: 0.12MG/HR, 0.2MG/ML, 0.7ML/HR
     Route: 039
     Dates: start: 20090601
  17. SIMVASTATIN [Concomitant]
     Indication: HYPERLIPIDAEMIA
     Dosage: 40 MG
     Route: 048
     Dates: start: 20071231
  18. EZETIMIBE [Concomitant]
     Indication: HYPERLIPIDAEMIA
     Dosage: 10 MG
     Route: 048
     Dates: start: 20070101
  19. HPS2-THRIVE-STUDY DRUG [Concomitant]
     Indication: HYPERLIPIDAEMIA
     Dosage: 2 ANZ
     Route: 048
     Dates: start: 20070101
  20. INOLAXOL [Concomitant]
     Indication: CONSTIPATION PROPHYLAXIS
     Dosage: 1 ANZ
     Route: 048
     Dates: start: 20090108
  21. ACETYLSALICYLIC ACID [Concomitant]
     Indication: ISCHAEMIC HEART DISEASE PROPHYLAXIS
     Dosage: 75 MG
     Route: 048
     Dates: start: 19980101
  22. AMILODIPIN [Concomitant]
     Indication: HYPERTENSION
     Dosage: 5 MG
     Route: 048
     Dates: start: 20081101
  23. ENALAPRIL [Concomitant]
     Indication: HYPERTENSION
     Dosage: 10 MG
     Route: 048
     Dates: start: 20081117
  24. VIAGRA [Concomitant]
     Indication: ERECTILE DYSFUNCTION
     Route: 048
     Dates: start: 20071015
  25. DICLOFENAC [Concomitant]
     Indication: PAIN
     Dosage: 150 MG
     Route: 048
     Dates: start: 20090125
  26. PARACETAMOL [Concomitant]
     Indication: PAIN
     Dosage: 4 G
     Route: 048
     Dates: start: 20090101
  27. AMITRIPTYLINE HCL [Concomitant]
     Indication: PAIN
     Dosage: 25 MG
     Route: 048
     Dates: start: 20090130
  28. MORPHINE [Concomitant]
     Indication: PAIN
     Route: 048
     Dates: start: 20090305, end: 20090306
  29. MORPHINE [Concomitant]
     Dosage: 40 MG
     Route: 048
     Dates: start: 20090306, end: 20090330
  30. MORPHINE [Concomitant]
     Dosage: 60 MG
     Route: 048
     Dates: start: 20090330
  31. ROPIVACAINE [Concomitant]
     Indication: PAIN
     Dosage: 150 MG
     Dates: start: 20090305, end: 20090305
  32. OXYCODONE HCL [Concomitant]
     Indication: PAIN
     Route: 048
     Dates: start: 20081217

REACTIONS (5)
  - BRAIN NEOPLASM [None]
  - CHEST PAIN [None]
  - PAIN [None]
  - SCROTAL INFECTION [None]
  - VERTIGO [None]
